FAERS Safety Report 9069469 (Version 1)
Quarter: 2013Q1

REPORT INFORMATION
  Report Type: Other
  Country: CM (occurrence: CM)
  Receive Date: 20130215
  Receipt Date: 20130215
  Transmission Date: 20140127
  Serious: Yes (Other)
  Sender: FDA-Public Use
  Company Number: CM-BRISTOL-MYERS SQUIBB COMPANY-17346131

PATIENT
  Age: 30 Year
  Sex: Male

DRUGS (3)
  1. EFAVIRENZ [Suspect]
     Indication: HIV INFECTION
     Dates: start: 201103
  2. ZIDOVUDINE [Suspect]
     Indication: HIV INFECTION
     Dates: start: 201103
  3. LAMIVUDINE [Suspect]
     Indication: HIV INFECTION
     Dates: start: 201103

REACTIONS (2)
  - Vitiligo [Recovering/Resolving]
  - Immune reconstitution inflammatory syndrome [Unknown]
